FAERS Safety Report 6200940-7 (Version None)
Quarter: 2009Q2

REPORT INFORMATION
  Report Type: 
  Country: None (occurrence: None)
  Receive Date: 20090523
  Receipt Date: 20081114
  Transmission Date: 20091009
  Serious: No
  Sender: FDA-Public Use
  Company Number: US-ALEXION-A200800348

PATIENT
  Sex: Female

DRUGS (10)
  1. SOLIRIS [Suspect]
     Indication: PAROXYSMAL NOCTURNAL HAEMOGLOBINURIA
     Dosage: 900 MG, Q2WKS
     Route: 042
     Dates: end: 20081118
  2. SOLIRIS [Suspect]
     Dosage: 900 MG, Q2WKS
     Route: 042
     Dates: start: 20081121
  3. ISOCARD /00586302/ [Concomitant]
     Dosage: 2 TABS, QD
     Route: 048
  4. PRILOSEC [Concomitant]
     Dosage: UNK, QD
     Route: 048
  5. IRON [Concomitant]
     Dosage: 1 TAB, QD
     Route: 048
  6. FOLIC ACID [Concomitant]
     Dosage: UNK, QD
     Route: 048
  7. ASPIRIN [Concomitant]
     Dosage: UNK, QD
     Route: 048
  8. ESTRIN [Concomitant]
     Dosage: 2 CAPS, QD
     Route: 048
  9. MULTI-VITAMINS [Concomitant]
     Dosage: UNK, QD
  10. B COMPLEX /00212701/ [Concomitant]
     Dosage: UNK, QD

REACTIONS (8)
  - BLOOD URINE PRESENT [None]
  - BRONCHITIS [None]
  - FATIGUE [None]
  - HAEMATOCRIT DECREASED [None]
  - HAEMOGLOBIN DECREASED [None]
  - LARYNGITIS [None]
  - LISTLESS [None]
  - SINUSITIS [None]
